FAERS Safety Report 7736125-2 (Version None)
Quarter: 2011Q3

REPORT INFORMATION
  Report Type: 
  Country: None (occurrence: None)
  Receive Date: 20110902
  Receipt Date: 20110822
  Transmission Date: 20111222
  Serious: Yes (Death, Hospitalization, Other)
  Sender: FDA-Public Use
  Company Number: FK201101753

PATIENT
  Age: 7 Month
  Sex: Male

DRUGS (1)
  1. PROPRANOLOL HYDROCHLORIDE [Suspect]
     Indication: PRODUCT USED FOR UNKNOWN INDICATION
     Dosage: 0.3 MG/KG, PER DAY, GASTROENTERAL USE

REACTIONS (13)
  - LYMPHOHISTIOCYTOSIS [None]
  - PULMONARY OEDEMA [None]
  - ESCHERICHIA TEST POSITIVE [None]
  - PULMONARY HYPERTENSIVE CRISIS [None]
  - RESPIRATORY FAILURE [None]
  - GENERAL PHYSICAL HEALTH DETERIORATION [None]
  - ENDOTOXAEMIA [None]
  - BRONCHOSPASM [None]
  - HEPATIC FAILURE [None]
  - PYREXIA [None]
  - SYSTEMIC INFLAMMATORY RESPONSE SYNDROME [None]
  - HISTIOCYTOSIS HAEMATOPHAGIC [None]
  - DRUG RESISTANCE [None]
